FAERS Safety Report 6307576-8 (Version None)
Quarter: 2009Q3

REPORT INFORMATION
  Report Type: 
  Country: None (occurrence: None)
  Receive Date: 20090813
  Receipt Date: 20090804
  Transmission Date: 20100115
  Serious: Yes (Death, Hospitalization)
  Sender: FDA-Public Use
  Company Number: ES-ELI_LILLY_AND_COMPANY-ES200908000800

PATIENT
  Age: 79 Year
  Sex: Female

DRUGS (6)
  1. FORTEO [Suspect]
     Indication: OSTEOPOROSIS
     Dosage: 20 UG, UNKNOWN
     Route: 058
     Dates: start: 20080701, end: 20090701
  2. ALOPURINOL [Concomitant]
     Dosage: UNK, UNKNOWN
     Route: 065
  3. METAMIZOLE [Concomitant]
     Dosage: UNK, UNKNOWN
     Route: 065
  4. GELOCATIL [Concomitant]
     Dosage: UNK, UNKNOWN
     Route: 065
  5. IBUPROFENO [Concomitant]
     Dosage: UNK, UNKNOWN
     Route: 065
  6. DIGOXIN [Concomitant]
     Dosage: UNK, UNKNOWN
     Route: 065

REACTIONS (4)
  - COLITIS ISCHAEMIC [None]
  - GASTROINTESTINAL INFECTION [None]
  - LARGE INTESTINAL HAEMORRHAGE [None]
  - PERITONITIS [None]
